FAERS Safety Report 19372355 (Version 1)
Quarter: 2021Q2

REPORT INFORMATION
  Report Type: Spontaneous
  Country: JP (occurrence: JP)
  Receive Date: 20210604
  Receipt Date: 20210604
  Transmission Date: 20210717
  Serious: Yes (Other)
  Sender: FDA-Public Use
  Company Number: JP-PFIZER INC-2021605425

PATIENT
  Age: 62 Year
  Sex: Male

DRUGS (2)
  1. METHOTREXATE SODIUM. [Suspect]
     Active Substance: METHOTREXATE SODIUM
     Dosage: 1 DF, MONTHLY (MAINTENANCE DOSE, INTRAVITREAL INJECTION)
     Route: 031
  2. METHOTREXATE SODIUM. [Suspect]
     Active Substance: METHOTREXATE SODIUM
     Indication: OCULAR LYMPHOMA
     Dosage: 1 DF, WEEKLY (LOADING DOSE)
     Route: 031

REACTIONS (4)
  - Product use issue [Unknown]
  - Retinal toxicity [Unknown]
  - Off label use [Unknown]
  - Drug effective for unapproved indication [Unknown]
